FAERS Safety Report 10355412 (Version 1)
Quarter: 2014Q3

REPORT INFORMATION
  Report Type: Spontaneous
  Country: US (occurrence: US)
  Receive Date: 20140731
  Receipt Date: 20140731
  Transmission Date: 20150326
  Serious: Yes (Hospitalization, Other)
  Sender: FDA-Public Use
  Company Number: US-GILEAD-2014-0110742

PATIENT
  Sex: Male

DRUGS (12)
  1. SYNTHROID [Concomitant]
     Active Substance: LEVOTHYROXINE SODIUM
  2. CALCIUM [Concomitant]
     Active Substance: CALCIUM
  3. KEPPRA [Concomitant]
     Active Substance: LEVETIRACETAM
  4. COUMADIN [Concomitant]
     Active Substance: WARFARIN SODIUM
  5. CLONIDINE. [Concomitant]
     Active Substance: CLONIDINE
  6. HYDRALAZINE [Concomitant]
     Active Substance: HYDRALAZINE HYDROCHLORIDE
  7. LETAIRIS [Suspect]
     Active Substance: AMBRISENTAN
     Indication: HIV INFECTION
     Dosage: 5 MG, QD
     Route: 065
     Dates: start: 20130906
  8. DIOVAN [Concomitant]
     Active Substance: VALSARTAN
  9. BACTRIM [Concomitant]
     Active Substance: SULFAMETHOXAZOLE\TRIMETHOPRIM
  10. HYDROCODONE [Concomitant]
     Active Substance: HYDROCODONE
  11. OMEPRAZOLE. [Concomitant]
     Active Substance: OMEPRAZOLE
  12. XANAX [Concomitant]
     Active Substance: ALPRAZOLAM

REACTIONS (1)
  - Thyroidectomy [Recovered/Resolved]
